FAERS Safety Report 4708789-9 (Version None)
Quarter: 2005Q3

REPORT INFORMATION
  Report Type: 
  Country: None (occurrence: None)
  Receive Date: 20050705
  Receipt Date: 20050622
  Transmission Date: 20060218
  Serious: Yes (Hospitalization, Disabling, Other)
  Sender: FDA-Public Use
  Company Number: 2005032566

PATIENT
  Age: 55 Year
  Sex: Female

DRUGS (5)
  1. SORTIS (ATORVASTATIN) [Suspect]
     Indication: HYPERCHOLESTEROLAEMIA
     Dates: start: 19970101
  2. STALTOR (CERIVASTATIN) [Suspect]
     Indication: HYPERCHOLESTEROLAEMIA
     Dates: start: 19970101
  3. PRAVASTATIN [Suspect]
     Indication: HYPERCHOLESTEROLAEMIA
     Dates: start: 19970101
  4. DIHYDROCODEINE (DIHYDROCODEINE) [Concomitant]
  5. LEVOCARNITINE  (LEVOCARNITINE) [Concomitant]

REACTIONS (25)
  - ABASIA [None]
  - ACTIVITIES OF DAILY LIVING IMPAIRED [None]
  - BLOOD CHOLESTEROL INCREASED [None]
  - BONE PAIN [None]
  - BRADYKINESIA [None]
  - CHOLECYSTECTOMY [None]
  - CYST [None]
  - DIFFICULTY IN WALKING [None]
  - DIPLEGIA [None]
  - DYSTONIA [None]
  - FIBROMYALGIA [None]
  - HYPOAESTHESIA [None]
  - IMPAIRED DRIVING ABILITY [None]
  - IMPAIRED WORK ABILITY [None]
  - JOINT STIFFNESS [None]
  - MULTIPLE SCLEROSIS [None]
  - MUSCLE SPASMS [None]
  - OSTEOARTHRITIS [None]
  - PERIARTHRITIS [None]
  - POLYP [None]
  - REFLEXES ABNORMAL [None]
  - RHABDOMYOLYSIS [None]
  - SENSORY DISTURBANCE [None]
  - THERAPY NON-RESPONDER [None]
  - THYROID FUNCTION TEST ABNORMAL [None]
